FAERS Safety Report 5372894-7 (Version None)
Quarter: 2007Q2

REPORT INFORMATION
  Report Type: 
  Country: None (occurrence: None)
  Receive Date: 20070621
  Receipt Date: 20070418
  Transmission Date: 20071010
  Serious: No
  Sender: FDA-Public Use
  Company Number: US-CVT-061955

PATIENT
  Age: 58 Year
  Sex: Female

DRUGS (13)
  1. RANEXA [Suspect]
     Indication: ANGINA PECTORIS
     Dosage: 500 MG, BID, ORAL
     Route: 048
     Dates: start: 20060401, end: 20061201
  2. LOTREL [Concomitant]
  3. AVAPRO [Concomitant]
  4. ISOSORBIDE        (ISOSORBIDE) [Concomitant]
  5. TOPROL XL (METOPROLOL SUCCINAT4E) [Concomitant]
  6. BUMEX [Concomitant]
  7. DOXAZOSIN                          (DOXAZOSIN) [Concomitant]
  8. LIPITOR [Concomitant]
  9. TRICOR [Concomitant]
  10. ZETIA [Concomitant]
  11. FOLTX             (CYANOCOBALAMIN, FOLIC ACID, PYRIDOXINE) [Concomitant]
  12. PLAVIX [Concomitant]
  13. ASPIRIN [Concomitant]

REACTIONS (1)
  - INCREASED INSULIN REQUIREMENT [None]
